FAERS Safety Report 24358543 (Version 1)
Quarter: 2024Q3

REPORT INFORMATION
  Report Type: Spontaneous
  Country: US (occurrence: None)
  Receive Date: 20240924
  Receipt Date: 20240924
  Transmission Date: 20241017
  Serious: Yes (Disabling)
  Sender: Public
  Company Number: None

PATIENT
  Age: 64 Year
  Sex: Female
  Weight: 51.75 kg

DRUGS (8)
  1. QULIPTA [Suspect]
     Active Substance: ATOGEPANT
     Indication: Migraine prophylaxis
  2. PROPRANOLOL [Concomitant]
     Active Substance: PROPRANOLOL HYDROCHLORIDE
  3. PILOCARPINE [Concomitant]
     Active Substance: PILOCARPINE
  4. CYCLOSPORINE [Concomitant]
     Active Substance: CYCLOSPORINE
  5. topical [Concomitant]
  6. LIOTHYRONINE [Concomitant]
     Active Substance: LIOTHYRONINE
  7. VITAMIN D2 [Concomitant]
     Active Substance: ERGOCALCIFEROL
  8. MAGNESIUM [Concomitant]
     Active Substance: MAGNESIUM

REACTIONS (4)
  - Urethral spasm [None]
  - Urethral pain [None]
  - Intentional product use issue [None]
  - Therapy cessation [None]
